FAERS Safety Report 25791070 (Version 1)
Quarter: 2025Q3

REPORT INFORMATION
  Report Type: Spontaneous
  Country: CN (occurrence: CN)
  Receive Date: 20250911
  Receipt Date: 20250911
  Transmission Date: 20251021
  Serious: Yes (Other)
  Sender: Kenvue
  Company Number: CN-KENVUE-20250902176

PATIENT

DRUGS (4)
  1. CHILDRENS MOTRIN [Suspect]
     Active Substance: IBUPROFEN
     Indication: Antipyresis
     Route: 048
     Dates: start: 20250817
  2. unspecified gastric protection [Concomitant]
     Indication: Symptomatic treatment
     Route: 065
     Dates: start: 20250814
  3. unspecified fluid [Concomitant]
     Indication: Symptomatic treatment
     Route: 065
     Dates: start: 20250814
  4. unspecified nutritional support [Concomitant]
     Indication: Symptomatic treatment
     Route: 065
     Dates: start: 20250814

REACTIONS (3)
  - Off label use [Unknown]
  - Rash erythematous [Recovering/Resolving]
  - Pruritus [Recovered/Resolved]

NARRATIVE: CASE EVENT DATE: 20250817
